FAERS Safety Report 6820331-5 (Version None)
Quarter: 2010Q3

REPORT INFORMATION
  Report Type: 
  Country: None (occurrence: None)
  Receive Date: 20100707
  Receipt Date: 20100630
  Transmission Date: 20110219
  Serious: Yes (Death, Hospitalization)
  Sender: FDA-Public Use
  Company Number: PHHO2010IT10037

PATIENT
  Sex: Male
  Weight: 80 kg

DRUGS (16)
  1. TASIGNA [Suspect]
     Indication: CHRONIC MYELOID LEUKAEMIA
     Dosage: 400 MG, BID
     Route: 048
     Dates: start: 20090505, end: 20090805
  2. TASIGNA [Suspect]
     Dosage: UNK
     Dates: start: 20090806, end: 20091115
  3. TASIGNA [Suspect]
     Dosage: 400 MG, BID
     Route: 048
     Dates: start: 20091116, end: 20100216
  4. STI571/CGP57148B T35717+CAPS [Suspect]
     Indication: CHRONIC MYELOID LEUKAEMIA
     Dosage: 400 MG, QD
     Route: 048
     Dates: start: 20090812, end: 20091110
  5. STI571/CGP57148B T35717+CAPS [Suspect]
     Dosage: UNK
     Dates: start: 20091111, end: 20100218
  6. STI571/CGP57148B T35717+CAPS [Suspect]
     Dosage: 400 MG, QD
     Route: 048
     Dates: start: 20100219, end: 20100321
  7. DASATINIB [Suspect]
     Dosage: 100 MG DAILY
     Dates: start: 20100321
  8. DASATINIB [Suspect]
     Dosage: 140 MG DAILY
     Dates: start: 20100329
  9. NIFEDIPINE [Concomitant]
  10. ZOFENOPRIL [Concomitant]
  11. DOXAZOSIN MESYLATE [Concomitant]
  12. ALLOPURINOL [Concomitant]
  13. INSULIN RAPID [Concomitant]
  14. INSULIN [Concomitant]
  15. SODIUM CHLORIDE [Concomitant]
  16. CEFTAZIDIME [Concomitant]

REACTIONS (9)
  - ACUTE MYELOID LEUKAEMIA [None]
  - CARDIOGENIC SHOCK [None]
  - COMA [None]
  - GENERAL PHYSICAL HEALTH DETERIORATION [None]
  - HYPERHIDROSIS [None]
  - LEUKOCYTOSIS [None]
  - LOSS OF CONSCIOUSNESS [None]
  - RESPIRATORY FAILURE [None]
  - SINUS TACHYCARDIA [None]
